FAERS Safety Report 25630008 (Version 1)
Quarter: 2025Q3

REPORT INFORMATION
  Report Type: Spontaneous
  Country: EU (occurrence: EU)
  Receive Date: 20250801
  Receipt Date: 20250801
  Transmission Date: 20251021
  Serious: Yes (Other)
  Sender: ELI LILLY AND COMPANY
  Company Number: None

PATIENT
  Age: 85 Year
  Sex: Female

DRUGS (2)
  1. ABEMACICLIB [Suspect]
     Active Substance: ABEMACICLIB
     Indication: Hormone receptor positive HER2 negative breast cancer
     Dosage: 150 MG, BID
     Route: 048
     Dates: start: 20250606, end: 20250711
  2. ANASTROZOLE [Concomitant]
     Active Substance: ANASTROZOLE
     Indication: Hormone receptor positive HER2 negative breast cancer

REACTIONS (3)
  - Overflow diarrhoea [Recovered/Resolved]
  - Rash [Recovered/Resolved]
  - Nausea [Recovered/Resolved]

NARRATIVE: CASE EVENT DATE: 20250610
